FAERS Safety Report 15076222 (Version 3)
Quarter: 2018Q3

REPORT INFORMATION
  Report Type: Spontaneous
  Country: US (occurrence: US)
  Receive Date: 20180627
  Receipt Date: 20180913
  Transmission Date: 20181010
  Serious: Yes (Hospitalization, Other)
  Sender: FDA-Public Use
  Company Number: US-COOPERSURGICAL, INC.-US-2018CPS023301

PATIENT

DRUGS (1)
  1. PARAGARD T 380A [Suspect]
     Active Substance: COPPER
     Indication: CONTRACEPTION
     Dosage: UNK
     Route: 015
     Dates: start: 200606, end: 20160826

REACTIONS (11)
  - Anxiety [Unknown]
  - Pain [Unknown]
  - Device expulsion [Recovered/Resolved]
  - Device defective [Unknown]
  - Emotional distress [Unknown]
  - Disturbance in attention [Unknown]
  - Complication of device removal [Recovered/Resolved]
  - Device breakage [Recovered/Resolved]
  - Foreign body in reproductive tract [Recovered/Resolved]
  - Intentional device use issue [Unknown]
  - Discomfort [Unknown]

NARRATIVE: CASE EVENT DATE: 2016
